FAERS Safety Report 10059898 (Version 1)
Quarter: 2014Q2

REPORT INFORMATION
  Report Type: Spontaneous
  Country: US (occurrence: US)
  Receive Date: 20140404
  Receipt Date: 20140404
  Transmission Date: 20141212
  Serious: Yes (Hospitalization)
  Sender: FDA-Public Use
  Company Number: US-GLAXOSMITHKLINE-A1067918A

PATIENT
  Age: 52 Year
  Sex: Male

DRUGS (10)
  1. ADVAIR [Suspect]
     Indication: PRODUCT USED FOR UNKNOWN INDICATION
     Route: 055
  2. ALBUTEROL [Concomitant]
  3. ASPIRIN [Concomitant]
  4. LIPITOR [Concomitant]
  5. BUSPIRONE [Concomitant]
  6. PLAVIX [Concomitant]
  7. PROZAC [Concomitant]
  8. ANUSOL HC [Concomitant]
  9. IMDUR [Concomitant]
  10. ZESTRIL [Concomitant]

REACTIONS (1)
  - Coronary arterial stent insertion [Unknown]
